FAERS Safety Report 11752286 (Version 3)
Quarter: 2015Q4

REPORT INFORMATION
  Report Type: Spontaneous
  Country: JP (occurrence: JP)
  Receive Date: 20151118
  Receipt Date: 20151211
  Transmission Date: 20160304
  Serious: Yes (Disabling, Other)
  Sender: FDA-Public Use
  Company Number: JP-ABBVIE-15P-087-1498470-00

PATIENT
  Age: 80 Year
  Sex: Male
  Weight: 70.2 kg

DRUGS (7)
  1. LEUPLIN SR [Suspect]
     Active Substance: LEUPROLIDE ACETATE
     Indication: PROSTATE CANCER
     Dosage: 11.25 MG, Q3MONTHS
     Route: 058
     Dates: start: 20121018
  2. WARFARIN [Suspect]
     Active Substance: WARFARIN
     Indication: CAROTID ARTERY STENOSIS
     Dosage: 1.5 MG, QD
     Route: 048
     Dates: end: 20151030
  3. URSO [Concomitant]
     Active Substance: URSODIOL
     Indication: HEPATIC FUNCTION ABNORMAL
     Dosage: 300 MG, TID
     Route: 048
     Dates: end: 20151030
  4. LEUPLIN SR [Suspect]
     Active Substance: LEUPROLIDE ACETATE
     Dosage: 11.25 MG, BID
     Route: 058
     Dates: start: 20151028
  5. VITAMINS NOS [Suspect]
     Active Substance: VITAMINS
     Indication: SPINAL OSTEOARTHRITIS
     Dosage: 15 AMICROGRAM, TID
     Route: 048
     Dates: end: 20151030
  6. PLAVIX [Suspect]
     Active Substance: CLOPIDOGREL BISULFATE
     Indication: CEREBRAL INFARCTION
     Dosage: 75 MG, QD
     Route: 048
     Dates: end: 20151030
  7. MAGMITT [Concomitant]
     Active Substance: MAGNESIUM OXIDE
     Indication: CONSTIPATION
     Dosage: 990 MG, TID
     Route: 048
     Dates: end: 20151030

REACTIONS (2)
  - Thalamus haemorrhage [Recovered/Resolved with Sequelae]
  - Accidental overdose [Unknown]

NARRATIVE: CASE EVENT DATE: 20151028
